FAERS Safety Report 6891220-5 (Version None)
Quarter: 2010Q3

REPORT INFORMATION
  Report Type: 
  Country: None (occurrence: None)
  Receive Date: 20100731
  Receipt Date: 20090627
  Transmission Date: 20110219
  Serious: No
  Sender: FDA-Public Use
  Company Number: US-PFIZER INC-2009221667

PATIENT
  Sex: Male
  Weight: 75.283 kg

DRUGS (2)
  1. LIPITOR [Suspect]
     Indication: BLOOD CHOLESTEROL ABNORMAL
     Dosage: 10 MG, 1X/DAY
  2. VITAMINS [Concomitant]
     Dosage: UNK

REACTIONS (5)
  - BLOOD CHOLESTEROL INCREASED [None]
  - DYSGEUSIA [None]
  - HEARING IMPAIRED [None]
  - IRRITABILITY [None]
  - OROPHARYNGEAL DISCOMFORT [None]
